FAERS Safety Report 5841268-4 (Version None)
Quarter: 2008Q3

REPORT INFORMATION
  Report Type: 
  Country: None (occurrence: None)
  Receive Date: 20080812
  Receipt Date: 20080806
  Transmission Date: 20090109
  Serious: Yes (Hospitalization)
  Sender: FDA-Public Use
  Company Number: US-BRISTOL-MYERS SQUIBB COMPANY-14290753

PATIENT
  Age: 61 Year
  Sex: Female
  Weight: 60 kg

DRUGS (3)
  1. CETUXIMAB [Suspect]
     Indication: PANCREATIC CARCINOMA
     Dosage: STARTED ON 14MAY08(400MG/M2);21MAY08(250MG/M2)
     Route: 042
     Dates: start: 20080724, end: 20080724
  2. GEMCITABINE [Suspect]
     Indication: PANCREATIC CARCINOMA
     Dosage: STARTED ON 14MAY08
     Route: 042
     Dates: start: 20080717, end: 20080717
  3. OXALIPLATIN [Suspect]
     Indication: PANCREATIC CARCINOMA
     Dosage: STARTED ON 14MAY08
     Route: 042
     Dates: start: 20080718, end: 20080718

REACTIONS (6)
  - BILE DUCT OBSTRUCTION [None]
  - CHOLANGITIS [None]
  - HYPOCALCAEMIA [None]
  - HYPOPHOSPHATAEMIA [None]
  - NEUTROPENIA [None]
  - THROMBOCYTOPENIA [None]
